FAERS Safety Report 5990170-6 (Version None)
Quarter: 2008Q4

REPORT INFORMATION
  Report Type: 
  Country: None (occurrence: None)
  Receive Date: 20081210
  Receipt Date: 20081125
  Transmission Date: 20090506
  Serious: Yes (Other)
  Sender: FDA-Public Use
  Company Number: 2008AL012114

PATIENT
  Age: 66 Year
  Sex: Female

DRUGS (5)
  1. TRAMADOL HYDROCHLORIDE [Suspect]
     Indication: PAIN
     Dosage: 100 MG; PO
     Route: 048
     Dates: start: 20070831
  2. LANSOPRAZOLE [Concomitant]
  3. LOSARTAN POTASSIUM [Concomitant]
  4. ACETAMINOPHEN W/ CODEINE [Concomitant]
  5. FUROSEMIDE [Concomitant]

REACTIONS (1)
  - ANGINA PECTORIS [None]
